FAERS Safety Report 19281921 (Version 3)
Quarter: 2022Q1

REPORT INFORMATION
  Report Type: Report from Study
  Country: US (occurrence: US)
  Receive Date: 20210520
  Receipt Date: 20220223
  Transmission Date: 20220423
  Serious: No
  Sender: FDA-Public Use
  Company Number: US-NOVARTISTESTPH-NVSC2021US113670

PATIENT
  Sex: Female

DRUGS (1)
  1. ENTRESTO [Suspect]
     Active Substance: SACUBITRIL\VALSARTAN
     Indication: Cardiac failure
     Dosage: 1 DOSAGE FORM, BID (24/26 MG), 1 IN THE MORNING AND ONE IN THE EVENING
     Route: 048
     Dates: start: 202109, end: 202110

REACTIONS (4)
  - Balance disorder [Unknown]
  - Hypoacusis [Unknown]
  - Fatigue [Unknown]
  - Dizziness [Unknown]
